FAERS Safety Report 18101656 (Version 1)
Quarter: 2020Q3

REPORT INFORMATION
  Report Type: Report from Study
  Country: BR (occurrence: BR)
  Receive Date: 20200801
  Receipt Date: 20200801
  Transmission Date: 20201103
  Serious: Yes (Other)
  Sender: FDA-Public Use
  Company Number: PHHY2018BR124706

PATIENT
  Age: 29 Year
  Sex: Male
  Weight: 85 kg

DRUGS (3)
  1. SANDOSTATIN LAR DEPOT [Suspect]
     Active Substance: OCTREOTIDE ACETATE
     Dosage: 40 MG, QMO
     Route: 030
     Dates: start: 20160701
  2. SANDOSTATIN LAR DEPOT [Suspect]
     Active Substance: OCTREOTIDE ACETATE
     Indication: ACROMEGALY
     Dosage: 30 MG, QMO
     Route: 030
     Dates: start: 201603
  3. SANDOSTATIN LAR DEPOT [Suspect]
     Active Substance: OCTREOTIDE ACETATE

REACTIONS (10)
  - Fatigue [Recovering/Resolving]
  - Therapeutic response unexpected [Unknown]
  - Nephrolithiasis [Unknown]
  - Fatigue [Recovered/Resolved]
  - Therapeutic response decreased [Not Recovered/Not Resolved]
  - Headache [Not Recovered/Not Resolved]
  - Insulin-like growth factor decreased [Not Recovered/Not Resolved]
  - Blood growth hormone decreased [Unknown]
  - Abdominal pain [Recovering/Resolving]
  - Insulin-like growth factor increased [Recovering/Resolving]

NARRATIVE: CASE EVENT DATE: 2019
